FAERS Safety Report 8680174 (Version 2)
Quarter: 2013Q1

REPORT INFORMATION
  Report Type: Spontaneous
  Country: US (occurrence: None)
  Receive Date: 20120706
  Receipt Date: 20130219
  Transmission Date: 20140127
  Serious: Yes (Other)
  Sender: FDA-Public Use
  Company Number: DSU-2012-05217

PATIENT
  Age: 66 Year
  Sex: Male

DRUGS (6)
  1. OLMESARTAN MEDOXOMIL [Suspect]
     Indication: HYPERTENSION
     Dosage: 20-40 (QD), PER ORAL
     Route: 048
  2. ACTOS (PIOGLITAZONE) (PIOGLITAZONE) (PIOGLITAZONE) [Concomitant]
  3. ACIPHEX (RABEPRAZOLE) (RABEPRAZOLE SODIUM) (RABEPRAZOLE SODIUM) [Concomitant]
  4. B 12 (CYANOCOBALAMIN) (CYANOCOBALAMIN) [Concomitant]
  5. CALCIUM (CALCIUM) (CALCIUM) [Concomitant]
  6. MULTIVITAMIN (ERGOCALCIFEROL, ASCORBIC ACID, PYRIDOXINE HYDROCHLORIDE, THIAMINE HYDROCHLORIDE, RETINOL, RIBOFLAVIN, NICOTINAMIDE, CALCIUM PANTOTHENATE) (ERGOCALCIFEROL, ASCORBIC ACID, PYRIDOXINE HYDROCHLORIDE, THIAMINE HYDROCHLORIDE, RETINOL, RIBOFLAVIN, NICOTINAMIDE, CALCIUM PANTOTHENATE) [Concomitant]

REACTIONS (5)
  - Malabsorption [None]
  - Weight decreased [None]
  - Gastritis [None]
  - Malnutrition [None]
  - Malabsorption [None]
